FAERS Safety Report 22124709 (Version 1)
Quarter: 2023Q1

REPORT INFORMATION
  Report Type: Spontaneous
  Country: CN (occurrence: CN)
  Receive Date: 20230322
  Receipt Date: 20230322
  Transmission Date: 20230418
  Serious: Yes (Other)
  Sender: FDA-Public Use
  Company Number: CN-SUN PHARMACEUTICAL INDUSTRIES LTD-2023R1-382250

PATIENT
  Age: 59 Year
  Sex: Female

DRUGS (3)
  1. CARBOPLATIN [Suspect]
     Active Substance: CARBOPLATIN
     Indication: Neuroblastoma
     Dosage: UNK
     Route: 065
     Dates: start: 202102
  2. ETOPOSIDE [Suspect]
     Active Substance: ETOPOSIDE
     Indication: Neuroblastoma
     Dosage: UNK
     Route: 065
     Dates: start: 202102
  3. METHOTREXATE [Suspect]
     Active Substance: METHOTREXATE
     Indication: Neuroblastoma
     Dosage: UNK
     Route: 037
     Dates: start: 202102

REACTIONS (6)
  - Disease progression [Unknown]
  - Somnolence [Unknown]
  - Memory impairment [Unknown]
  - Communication disorder [Unknown]
  - Limb discomfort [Unknown]
  - Brain oedema [Unknown]
